FAERS Safety Report 14476965 (Version 1)
Quarter: 2018Q1

REPORT INFORMATION
  Report Type: Report from Study
  Country: US (occurrence: US)
  Receive Date: 20180201
  Receipt Date: 20180201
  Transmission Date: 20180509
  Serious: Yes (Other)
  Sender: FDA-Public Use
  Company Number: US-EXELIXIS-CABO-17009711

PATIENT
  Age: 67 Year
  Sex: Male
  Weight: 81.63 kg

DRUGS (1)
  1. CABOMETYX [Suspect]
     Active Substance: CABOZANTINIB S-MALATE
     Indication: RENAL CANCER
     Dosage: 40 MG, QD
     Route: 048
     Dates: start: 20160824, end: 2017

REACTIONS (2)
  - Squamous cell carcinoma [Unknown]
  - Impaired healing [Unknown]

NARRATIVE: CASE EVENT DATE: 201705
